FAERS Safety Report 4433668-4 (Version None)
Quarter: 2004Q3

REPORT INFORMATION
  Report Type: 
  Country: None (occurrence: None)
  Receive Date: 20040826
  Receipt Date: 20040601
  Transmission Date: 20050211
  Serious: No
  Sender: FDA-Public Use
  Company Number: US-GLAXOSMITHKLINE-A0512867A

PATIENT
  Age: 75 Year
  Sex: Male

DRUGS (4)
  1. AVODART [Suspect]
     Indication: BENIGN PROSTATIC HYPERPLASIA
     Dosage: .5MG PER DAY
     Route: 048
     Dates: start: 20030601
  2. SYNTHROID [Concomitant]
  3. SAW PALMETTO [Concomitant]
  4. MULTI-VITAMIN [Concomitant]

REACTIONS (1)
  - GYNAECOMASTIA [None]
